FAERS Safety Report 9546662 (Version 3)
Quarter: 2014Q2

REPORT INFORMATION
  Report Type: Report from Study
  Country: US (occurrence: US)
  Receive Date: 20130924
  Receipt Date: 20140626
  Transmission Date: 20141212
  Serious: Yes (Hospitalization)
  Sender: FDA-Public Use
  Company Number: US-BIOGENIDEC-2013BI092553

PATIENT
  Age: 63 Year
  Sex: Female

DRUGS (14)
  1. AVONEX [Suspect]
     Indication: MULTIPLE SCLEROSIS
     Route: 030
     Dates: start: 19970701
  2. AVONEX [Suspect]
     Indication: MULTIPLE SCLEROSIS
     Route: 030
     Dates: start: 20120229
  3. ALENDRONATE SODIUM [Concomitant]
  4. TRIAMTERENE AND HYDROCHLOROTHIAZIDE [Concomitant]
  5. METOCLOPRAMIDE HCL [Concomitant]
  6. ADVIL [Concomitant]
  7. AMANTADINE HCL [Concomitant]
  8. CALCIUM CITRATE [Concomitant]
  9. DYAZIDE [Concomitant]
  10. OMEPRAZOLE [Concomitant]
  11. REGLAN [Concomitant]
  12. SYNTHROID [Concomitant]
  13. VITAMIN B-12 [Concomitant]
  14. VITAMIN D [Concomitant]

REACTIONS (5)
  - Dermal cyst [Recovered/Resolved]
  - Post procedural swelling [Recovered/Resolved]
  - Nervous system disorder [Recovered/Resolved]
  - Influenza like illness [Recovered/Resolved]
  - Rash [Recovered/Resolved]
